FAERS Safety Report 8800095 (Version 1)
Quarter: 2012Q4

REPORT INFORMATION
  Report Type: Report from Study
  Country: HU (occurrence: HU)
  Receive Date: 20120921
  Receipt Date: 20120921
  Transmission Date: 20130627
  Serious: Yes (Hospitalization, Other)
  Sender: FDA-Public Use
  Company Number: HU-ROCHE-1126452

PATIENT
  Sex: Female

DRUGS (1)
  1. XELODA [Suspect]
     Indication: COLORECTAL CANCER
     Route: 048
     Dates: start: 20071020, end: 200807

REACTIONS (4)
  - Pelvic inflammatory disease [Unknown]
  - Gastrointestinal inflammation [Unknown]
  - Palmar-plantar erythrodysaesthesia syndrome [Unknown]
  - Hepatitis [Unknown]
